FAERS Safety Report 10866253 (Version 1)
Quarter: 2015Q1

REPORT INFORMATION
  Report Type: Spontaneous
  Country: JP (occurrence: None)
  Receive Date: 20150220
  Receipt Date: 20150220
  Transmission Date: 20150721
  Serious: Yes (Hospitalization)
  Sender: FDA-Public Use
  Company Number: 2015SCAL000040

PATIENT
  Age: 83 Year
  Sex: Female

DRUGS (2)
  1. RIVASTIGMINE TARTRATE. [Suspect]
     Active Substance: RIVASTIGMINE TARTRATE
     Indication: DEMENTIA WITH LEWY BODIES
     Route: 062
  2. PREDNISOLONE (PREDNISOLONE) UNKNOWN [Concomitant]
     Active Substance: PREDNISOLONE

REACTIONS (9)
  - Cardiomegaly [None]
  - Renal failure [None]
  - Sinus arrest [None]
  - Pulmonary congestion [None]
  - Ventricular hypokinesia [None]
  - Cardiac failure [None]
  - Bundle branch block left [None]
  - Hypoxia [None]
  - Presyncope [None]
